FAERS Safety Report 5312435-3 (Version None)
Quarter: 2007Q2

REPORT INFORMATION
  Report Type: 
  Country: None (occurrence: None)
  Receive Date: 20070430
  Receipt Date: 20070417
  Transmission Date: 20071010
  Serious: Yes (Hospitalization)
  Sender: FDA-Public Use
  Company Number: SE-MERCK-0704SWE00034

PATIENT
  Age: 15 Year
  Sex: Female

DRUGS (6)
  1. INDINAVIR [Suspect]
     Indication: HUMAN IMMUNODEFICIENCY VIRUS TRANSMISSION
     Route: 048
     Dates: start: 19960101, end: 20010101
  2. INDINAVIR [Suspect]
     Route: 048
     Dates: start: 20010701, end: 20010801
  3. ZIDOVUDINE [Concomitant]
     Indication: HUMAN IMMUNODEFICIENCY VIRUS TRANSMISSION
     Route: 065
     Dates: start: 19920101, end: 19960101
  4. STAVUDINE [Concomitant]
     Indication: HUMAN IMMUNODEFICIENCY VIRUS TRANSMISSION
     Route: 065
     Dates: start: 19960101, end: 20010801
  5. LAMIVUDINE [Concomitant]
     Indication: HUMAN IMMUNODEFICIENCY VIRUS TRANSMISSION
     Route: 065
     Dates: start: 19960101, end: 20010801
  6. RITONAVIR [Concomitant]
     Indication: HUMAN IMMUNODEFICIENCY VIRUS TRANSMISSION
     Route: 065
     Dates: start: 20010701, end: 20010801

REACTIONS (2)
  - BLOOD CREATININE INCREASED [None]
  - RETROVIRAL REBOUND SYNDROME [None]
